FAERS Safety Report 5164369-5 (Version None)
Quarter: 2006Q4

REPORT INFORMATION
  Report Type: 
  Country: None (occurrence: None)
  Receive Date: 20061127
  Receipt Date: 20061127
  Transmission Date: 20070319
  Serious: Yes (Other)
  Sender: FDA-Public Use
  Company Number: None

PATIENT
  Age: 55 Year
  Sex: Male
  Weight: 172.3669 kg

DRUGS (2)
  1. SERTRALINE HCL [Suspect]
     Indication: DEPRESSION
     Dosage: 150MGS  DAILY  PO
     Route: 048
     Dates: start: 20061022, end: 20061122
  2. SERTRALINE HCL [Suspect]
     Indication: SCHIZOAFFECTIVE DISORDER
     Dosage: 150MGS  DAILY  PO
     Route: 048
     Dates: start: 20061022, end: 20061122

REACTIONS (6)
  - AGGRESSION [None]
  - ANXIETY [None]
  - CRYING [None]
  - DEPRESSION [None]
  - POOR QUALITY DRUG ADMINISTERED [None]
  - THERAPEUTIC RESPONSE UNEXPECTED WITH DRUG SUBSTITUTION [None]
